FAERS Safety Report 8479565-9 (Version None)
Quarter: 2012Q2

REPORT INFORMATION
  Report Type: 
  Country: None (occurrence: None)
  Receive Date: 20120629
  Receipt Date: 20120622
  Transmission Date: 20120825
  Serious: Yes (Death, Life-Threatening)
  Sender: FDA-Public Use
  Company Number: JP-AMGEN-JPNSP2012013735

PATIENT
  Age: 81 Year
  Sex: Female
  Weight: 65 kg

DRUGS (13)
  1. CANDESARTAN CILEXETIL [Concomitant]
     Indication: HYPERTENSION
     Dosage: UNCERTAINTY
     Route: 048
  2. CARVEDILOL [Concomitant]
     Indication: CARDIAC FAILURE
     Dosage: UNCERTAINTY
     Route: 048
  3. RABEPRAZOLE SODIUM [Concomitant]
     Indication: PROPHYLAXIS
     Dosage: UNCERTAINTY
     Route: 048
  4. LASIX [Concomitant]
     Indication: CARDIAC FAILURE
     Dosage: UNCERTAINTY
     Route: 065
  5. FLOMOX [Concomitant]
     Indication: BRONCHITIS
     Dosage: UNCERTAINTY
     Route: 048
  6. VANCOMYCIN HYDROCHLORIDE [Concomitant]
     Indication: STAPHYLOCOCCAL SEPSIS
     Dosage: UNCERTAINTY
     Route: 065
  7. LANSOPRAZOLE [Concomitant]
     Indication: PROPHYLAXIS
     Dosage: UNCERTAINTY
     Route: 065
  8. ROMIPLOSTIM - KHK [Suspect]
     Indication: IDIOPATHIC THROMBOCYTOPENIC PURPURA
     Dosage: 4 MUG/KG, QD
     Route: 058
     Dates: start: 20120107, end: 20120124
  9. PROMACTA [Concomitant]
     Indication: IDIOPATHIC THROMBOCYTOPENIC PURPURA
     Route: 048
     Dates: start: 20110331, end: 20120107
  10. HEAVY MAGNESIUM OXIDE [Concomitant]
     Indication: CONSTIPATION
     Dosage: UNCERTAINTY
     Route: 048
  11. IMMUNE GLOBULIN NOS [Concomitant]
     Indication: IDIOPATHIC THROMBOCYTOPENIC PURPURA
  12. AMLODIPINE [Concomitant]
     Indication: HYPERTENSION
     Dosage: UNCERTAINTY
     Route: 048
  13. MIYA BM [Concomitant]
     Indication: ENTEROCOLITIS
     Dosage: UNCERTAINTY
     Route: 048

REACTIONS (2)
  - MELAENA [None]
  - CARDIAC FAILURE [None]
